FAERS Safety Report 12788128 (Version 1)
Quarter: 2016Q3

REPORT INFORMATION
  Report Type: Spontaneous
  Country: US (occurrence: US)
  Receive Date: 20160928
  Receipt Date: 20160928
  Transmission Date: 20161109
  Serious: No
  Sender: FDA-Public Use
  Company Number: US-TEVA-615609USA

PATIENT
  Age: 16 Year
  Sex: Female
  Weight: 52.21 kg

DRUGS (1)
  1. SPRINTEC [Suspect]
     Active Substance: ETHINYL ESTRADIOL\NORGESTIMATE
     Dosage: 0.250MG /0.035MG
     Route: 065
     Dates: start: 20151122, end: 20151128

REACTIONS (5)
  - Urticaria [Recovering/Resolving]
  - Abdominal distension [Recovering/Resolving]
  - Emotional disorder [Recovering/Resolving]
  - Pruritus [Recovering/Resolving]
  - Product use issue [Unknown]

NARRATIVE: CASE EVENT DATE: 20151125
